FAERS Safety Report 24772000 (Version 3)
Quarter: 2025Q1

REPORT INFORMATION
  Report Type: Spontaneous
  Country: US (occurrence: US)
  Receive Date: 20241224
  Receipt Date: 20250301
  Transmission Date: 20250409
  Serious: No
  Sender: SANOFI AVENTIS
  Company Number: US-SA-2024SA377445

PATIENT
  Sex: Female
  Weight: 59.09 kg

DRUGS (12)
  1. DUPIXENT [Suspect]
     Active Substance: DUPILUMAB
     Indication: Dermatitis atopic
     Dosage: 300 MG, QOW
     Route: 058
  2. PREMARIN [Concomitant]
     Active Substance: ESTROGENS, CONJUGATED
  3. HERBALS\TURMERIC [Concomitant]
     Active Substance: HERBALS\TURMERIC
  4. MAGNESIUM [Concomitant]
     Active Substance: MAGNESIUM
  5. LUTEIN [Concomitant]
     Active Substance: LUTEIN
  6. VITAMIN D3 [Concomitant]
     Active Substance: CHOLECALCIFEROL
  7. MIRTAZAPINE [Concomitant]
     Active Substance: MIRTAZAPINE
  8. SULFASALAZINE [Concomitant]
     Active Substance: SULFASALAZINE
  9. PREDNISONE [Concomitant]
     Active Substance: PREDNISONE
  10. PROBIOTICS NOS [Concomitant]
     Active Substance: PROBIOTICS NOS
  11. HUMIRA [Concomitant]
     Active Substance: ADALIMUMAB
  12. SLEEP AID (DIPHENHYDRAMINE HYDROCHLORIDE) [Concomitant]
     Active Substance: DIPHENHYDRAMINE HYDROCHLORIDE

REACTIONS (3)
  - Pain [Unknown]
  - Rash [Not Recovered/Not Resolved]
  - Sleep disorder [Unknown]
